FAERS Safety Report 17050858 (Version 1)
Quarter: 2019Q4

REPORT INFORMATION
  Report Type: Spontaneous
  Country: CA (occurrence: CA)
  Receive Date: 20191120
  Receipt Date: 20191120
  Transmission Date: 20200122
  Serious: Yes (Life-Threatening)
  Sender: FDA-Public Use
  Company Number: CA-AUROBINDO-AUR-APL-2019-073540

PATIENT
  Age: 65 Year
  Sex: Male
  Weight: 81 kg

DRUGS (1)
  1. ROSUVASTATIN TABLET [Suspect]
     Active Substance: ROSUVASTATIN
     Indication: HYPERCHOLESTEROLAEMIA
     Dosage: 10.0 MILLIGRAM, ONCE A DAY
     Route: 048

REACTIONS (6)
  - Atrioventricular block [Recovering/Resolving]
  - Stent placement [Recovering/Resolving]
  - Dysuria [Recovering/Resolving]
  - Benign prostatic hyperplasia [Recovering/Resolving]
  - Chest pain [Recovering/Resolving]
  - Condition aggravated [Recovering/Resolving]
